FAERS Safety Report 4860922-4 (Version None)
Quarter: 2005Q4

REPORT INFORMATION
  Report Type: 
  Country: None (occurrence: None)
  Receive Date: 20051220
  Receipt Date: 20051213
  Transmission Date: 20060501
  Serious: Yes (Hospitalization)
  Sender: FDA-Public Use
  Company Number: FR-BRISTOL-MYERS SQUIBB COMPANY-13215728

PATIENT
  Age: 38 Year
  Sex: Female

DRUGS (2)
  1. SUSTIVA [Suspect]
     Route: 048
     Dates: start: 20031219
  2. RIFAMPICIN [Suspect]
     Route: 048

REACTIONS (1)
  - CONVERSION DISORDER [None]
